FAERS Safety Report 18273500 (Version 1)
Quarter: 2020Q3

REPORT INFORMATION
  Report Type: Spontaneous
  Country: FR (occurrence: FR)
  Receive Date: 20200916
  Receipt Date: 20200916
  Transmission Date: 20201103
  Serious: Yes (Hospitalization)
  Sender: FDA-Public Use
  Company Number: FR-PFIZER INC-2020354084

PATIENT
  Age: 53 Year
  Sex: Female
  Weight: 39 kg

DRUGS (8)
  1. MIDAZOLAM. [Suspect]
     Active Substance: MIDAZOLAM
     Dosage: UNK
     Dates: start: 20200617
  2. SUBUTEX [Concomitant]
     Active Substance: BUPRENORPHINE HYDROCHLORIDE
     Indication: PAIN MANAGEMENT
     Dosage: UNK
  3. TERCIAN [CYAMEMAZINE] [Suspect]
     Active Substance: CYAMEMAZINE
     Indication: ANXIETY
     Dosage: UNK (Q3HR (12.5 MG AT 4 P.M., 7:30 P.M. THEN 11 P.M))
     Route: 048
     Dates: start: 20200616, end: 20200617
  4. LYRICA [Suspect]
     Active Substance: PREGABALIN
     Dosage: 75 MG, 3X/DAY
     Dates: start: 20200616, end: 20200617
  5. METHADONE [Suspect]
     Active Substance: METHADONE HYDROCHLORIDE
     Indication: CANCER PAIN
     Dosage: 40 MG, 2X/DAY
     Route: 048
     Dates: start: 20200612
  6. MOVENTIG [Suspect]
     Active Substance: NALOXEGOL OXALATE
     Dosage: 25 MG
  7. MORPHINE [Suspect]
     Active Substance: MORPHINE
     Dosage: UNK
     Dates: start: 20200617, end: 20200618
  8. LEXOMIL [Suspect]
     Active Substance: BROMAZEPAM
     Indication: ANXIETY
     Dosage: 6 MG (ONCE IN TOTAL)
     Route: 048
     Dates: start: 20200616, end: 20200617

REACTIONS (4)
  - Miosis [Unknown]
  - Hyperthermia [Unknown]
  - Altered state of consciousness [Recovered/Resolved]
  - Urinary retention [Recovered/Resolved]

NARRATIVE: CASE EVENT DATE: 20200617
